FAERS Safety Report 19364628 (Version 1)
Quarter: 2021Q2

REPORT INFORMATION
  Report Type: Spontaneous
  Country: CN (occurrence: CN)
  Receive Date: 20210602
  Receipt Date: 20210602
  Transmission Date: 20210717
  Serious: Yes (Other)
  Sender: FDA-Public Use
  Company Number: CN-ELI_LILLY_AND_COMPANY-CN202105011839

PATIENT
  Age: 52 Year
  Sex: Male
  Weight: 67 kg

DRUGS (10)
  1. GEMCITABINE HYDROCHLORIDE. [Suspect]
     Active Substance: GEMCITABINE HYDROCHLORIDE
     Indication: METASTASES TO LIVER
     Dosage: 1 G, SINGLE
     Route: 041
     Dates: start: 20210430, end: 20210430
  2. CAMRELIZUMAB [Suspect]
     Active Substance: CAMRELIZUMAB
     Indication: IMMUNOCHEMOTHERAPY
     Dosage: 200 MG, SINGLE
     Route: 041
     Dates: start: 20210502, end: 20210502
  3. SODIUM CHLORIDE. [Concomitant]
     Active Substance: SODIUM CHLORIDE
     Dosage: 250 ML, SINGLE
     Route: 041
     Dates: start: 20210502, end: 20210502
  4. PACLITAXEL. [Suspect]
     Active Substance: PACLITAXEL
     Indication: METASTASES TO LIVER
  5. SODIUM CHLORIDE. [Concomitant]
     Active Substance: SODIUM CHLORIDE
     Indication: MEDICATION DILUTION
     Dosage: 100 ML, SINGLE
     Route: 041
     Dates: start: 20210430, end: 20210430
  6. SODIUM CHLORIDE. [Concomitant]
     Active Substance: SODIUM CHLORIDE
     Dosage: 100 ML, SINGLE
     Route: 041
     Dates: start: 20210502, end: 20210502
  7. PACLITAXEL. [Suspect]
     Active Substance: PACLITAXEL
     Indication: PANCREATIC CARCINOMA
     Dosage: 200 MG, SINGLE
     Route: 041
     Dates: start: 20210430, end: 20210430
  8. TAI XIN SHENG [Suspect]
     Active Substance: NIMOTUZUMAB
     Indication: IMMUNOCHEMOTHERAPY
     Dosage: 400 MG, SINGLE
     Route: 041
     Dates: start: 20210502, end: 20210502
  9. SODIUM CHLORIDE. [Concomitant]
     Active Substance: SODIUM CHLORIDE
     Dosage: 100 ML, SINGLE
     Route: 041
     Dates: start: 20210430, end: 20210430
  10. GEMCITABINE HYDROCHLORIDE. [Suspect]
     Active Substance: GEMCITABINE HYDROCHLORIDE
     Indication: PANCREATIC CARCINOMA
     Dosage: 600 MG, SINGLE
     Route: 041
     Dates: start: 20210430, end: 20210430

REACTIONS (2)
  - Full blood count decreased [Unknown]
  - Anaemia [Unknown]

NARRATIVE: CASE EVENT DATE: 20210504
